FAERS Safety Report 7867130-3 (Version None)
Quarter: 2011Q4

REPORT INFORMATION
  Report Type: 
  Country: None (occurrence: None)
  Receive Date: 20111028
  Receipt Date: 20111022
  Transmission Date: 20120403
  Serious: Yes (Hospitalization)
  Sender: FDA-Public Use
  Company Number: US-BRISTOL-MYERS SQUIBB COMPANY-16147373

PATIENT
  Age: 77 Year
  Sex: Male
  Weight: 106 kg

DRUGS (2)
  1. IPILIMUMAB [Suspect]
     Indication: MALIGNANT MELANOMA
     Dosage: LAST DOSE ON 12AUG11
     Route: 042
     Dates: start: 20110318, end: 20110812
  2. LEUKINE [Suspect]
     Indication: MALIGNANT MELANOMA
     Dosage: CONT AND LAST DOSE ON 06OCT11
     Route: 058
     Dates: start: 20110318, end: 20110901

REACTIONS (7)
  - FALL [None]
  - DEHYDRATION [None]
  - NAUSEA [None]
  - VOMITING [None]
  - ADRENAL INSUFFICIENCY [None]
  - DECREASED APPETITE [None]
  - RENAL FAILURE ACUTE [None]
